FAERS Safety Report 5248836-1 (Version None)
Quarter: 2007Q1

REPORT INFORMATION
  Report Type: 
  Country: None (occurrence: None)
  Receive Date: 20070228
  Receipt Date: 20060303
  Transmission Date: 20070707
  Serious: No
  Sender: FDA-Public Use
  Company Number: 006648

PATIENT
  Age: 16 Year
  Sex: Female

DRUGS (3)
  1. VALTREX [Suspect]
     Dosage: 500MG PER DAY
     Route: 048
     Dates: start: 20041201
  2. ZARONTIN [Suspect]
     Indication: EPILEPSY
     Route: 065
     Dates: start: 19960101
  3. SPRINTEC [Suspect]
     Indication: CONTRACEPTION
     Route: 048
     Dates: start: 20050501

REACTIONS (2)
  - DRUG INTERACTION [None]
  - DRUG LEVEL BELOW THERAPEUTIC [None]
